FAERS Safety Report 17360304 (Version 1)
Quarter: 2020Q1

REPORT INFORMATION
  Report Type: Spontaneous
  Country: US (occurrence: US)
  Receive Date: 20200116
  Receipt Date: 20200116
  Transmission Date: 20200409
  Serious: No
  Sender: FDA-Public Use
  Company Number: None

PATIENT
  Age: 58 Year
  Sex: Female
  Weight: 72.57 kg

DRUGS (1)
  1. DULOXETINE 60MG CAPSULE [Suspect]
     Active Substance: DULOXETINE HYDROCHLORIDE
     Indication: MAJOR DEPRESSION
     Route: 048
     Dates: start: 201403, end: 201405

REACTIONS (4)
  - Suicidal ideation [None]
  - Product substitution issue [None]
  - Suicide attempt [None]
  - Depression [None]

NARRATIVE: CASE EVENT DATE: 20190501
